FAERS Safety Report 20134164 (Version 1)
Quarter: 2021Q4

REPORT INFORMATION
  Report Type: Report from Study
  Country: TR (occurrence: TR)
  Receive Date: 20211201
  Receipt Date: 20211201
  Transmission Date: 20220303
  Serious: Yes (Death)
  Sender: FDA-Public Use
  Company Number: TR-ABBVIE-21K-161-4180180-00

PATIENT
  Age: 84 Year
  Sex: Male
  Weight: 70 kg

DRUGS (11)
  1. CARBIDOPA\LEVODOPA [Suspect]
     Active Substance: CARBIDOPA\LEVODOPA
     Indication: Parkinson^s disease
     Dosage: MORNING DOSE (ML) 6.50 CONTINIOUS DOSE (ML) 3.30 EXTRA DOSE (ML) 1.00
     Route: 050
     Dates: start: 20190326
  2. CARBIDOPA\LEVODOPA [Suspect]
     Active Substance: CARBIDOPA\LEVODOPA
  3. ARICEPT [Concomitant]
     Active Substance: DONEPEZIL HYDROCHLORIDE
     Indication: Dementia
     Route: 048
  4. SEROQUEL [Concomitant]
     Active Substance: QUETIAPINE FUMARATE
     Indication: Parkinson^s disease
     Route: 048
     Dates: start: 20210326
  5. RISPERDAL [Concomitant]
     Active Substance: RISPERIDONE
     Indication: Parkinson^s disease
     Dosage: ONE 0.5MG
     Route: 048
  6. AVODART [Concomitant]
     Active Substance: DUTASTERIDE
     Indication: Prostatic disorder
     Dosage: 0.5 MG
     Route: 048
  7. SILODOSIN [Concomitant]
     Active Substance: SILODOSIN
     Indication: Prostatic disorder
     Route: 048
  8. MIRABEGRON [Concomitant]
     Active Substance: MIRABEGRON
     Indication: Prostatic disorder
     Route: 048
  9. BENSERAZIDE HYDROCHLORIDE\LEVODOPA [Concomitant]
     Active Substance: BENSERAZIDE HYDROCHLORIDE\LEVODOPA
     Indication: Parkinson^s disease
     Route: 048
  10. ASPIRIN [Concomitant]
     Active Substance: ASPIRIN
     Indication: Anticoagulant therapy
     Route: 048
     Dates: start: 2018
  11. AMANTADINE SULFATE [Concomitant]
     Active Substance: AMANTADINE SULFATE
     Indication: Parkinson^s disease
     Route: 048

REACTIONS (1)
  - Death [Fatal]

NARRATIVE: CASE EVENT DATE: 20211130
